FAERS Safety Report 14528388 (Version 1)
Quarter: 2018Q1

REPORT INFORMATION
  Report Type: Spontaneous
  Country: US (occurrence: US)
  Receive Date: 20180214
  Receipt Date: 20180214
  Transmission Date: 20180509
  Serious: No
  Sender: FDA-Public Use
  Company Number: US-ASTRAZENECA-2018SE09302

PATIENT
  Sex: Female

DRUGS (1)
  1. TAGRISSO [Suspect]
     Active Substance: OSIMERTINIB
     Dosage: UNKNOWN
     Route: 048
     Dates: start: 201711

REACTIONS (7)
  - Decreased appetite [Not Recovered/Not Resolved]
  - Eating disorder [Unknown]
  - Oral discomfort [Unknown]
  - Throat irritation [Unknown]
  - Fatigue [Not Recovered/Not Resolved]
  - Glossodynia [Unknown]
  - Dry skin [Unknown]

NARRATIVE: CASE EVENT DATE: 20171222
